FAERS Safety Report 25364010 (Version 1)
Quarter: 2025Q2

REPORT INFORMATION
  Report Type: Spontaneous
  Country: HU (occurrence: HU)
  Receive Date: 20250527
  Receipt Date: 20250527
  Transmission Date: 20250716
  Serious: Yes (Other)
  Sender: NOVARTIS
  Company Number: HU-002147023-NVSC2025HU083727

PATIENT

DRUGS (3)
  1. RIBOCICLIB [Suspect]
     Active Substance: RIBOCICLIB
     Indication: Invasive breast carcinoma
     Route: 065
     Dates: start: 202304
  2. LETROZOLE [Suspect]
     Active Substance: LETROZOLE
     Indication: Invasive breast carcinoma
     Route: 065
     Dates: start: 202304
  3. DENOSUMAB [Concomitant]
     Active Substance: DENOSUMAB
     Indication: Invasive breast carcinoma
     Route: 065
     Dates: start: 202304

REACTIONS (2)
  - Pneumonia [Unknown]
  - Therapeutic product effect incomplete [Unknown]

NARRATIVE: CASE EVENT DATE: 20230801
